FAERS Safety Report 9001613 (Version 3)
Quarter: 2013Q1

REPORT INFORMATION
  Report Type: Spontaneous
  Country: FR (occurrence: FR)
  Receive Date: 20130107
  Receipt Date: 20130128
  Transmission Date: 20140127
  Serious: Yes (Hospitalization)
  Sender: FDA-Public Use
  Company Number: FR-B.I. PHARMACEUTICALS,INC./RIDGEFIELD-2013-FF-00002FF

PATIENT
  Age: 60 Year
  Sex: Female

DRUGS (4)
  1. SPIRIVA [Suspect]
     Indication: PNEUMOTHORAX
     Dosage: 18 MCG
     Route: 055
     Dates: start: 200502, end: 201205
  2. SPIRIVA [Suspect]
     Dosage: 18 MCG
     Route: 055
     Dates: start: 201207
  3. LEXOMIL [Concomitant]
     Indication: ANXIETY
  4. LEXOMIL [Concomitant]
     Indication: PALPITATIONS

REACTIONS (9)
  - Malaise [Unknown]
  - Palpitations [Unknown]
  - Anxiety [Unknown]
  - Pruritus [Unknown]
  - Diplopia [Unknown]
  - Headache [Recovered/Resolved]
  - Dysphagia [Unknown]
  - Wheezing [Unknown]
  - Product quality issue [Unknown]
